FAERS Safety Report 9391143 (Version 1)
Quarter: 2013Q3

REPORT INFORMATION
  Report Type: Spontaneous
  Country: AU (occurrence: AU)
  Receive Date: 20130709
  Receipt Date: 20130709
  Transmission Date: 20140515
  Serious: Yes (Hospitalization)
  Sender: FDA-Public Use
  Company Number: AU-ASTRAZENECA-2013SE49019

PATIENT
  Age: 19 Year
  Sex: Male

DRUGS (25)
  1. PIPERACILLIN TAZOBACTAM [Concomitant]
     Route: 042
  2. SODIUM CITRATE [Concomitant]
  3. TRAMADOL HYDROCHLORIDE [Concomitant]
     Route: 048
  4. XYLOMETAZOLINE HYDROCHLORIDE [Concomitant]
     Dosage: ONE TIME
  5. PROPOFOL [Suspect]
     Route: 065
     Dates: start: 20130114
  6. FENTANYL [Suspect]
     Route: 065
     Dates: start: 20130114
  7. FENTANYL [Suspect]
     Route: 058
  8. MORPHINE [Suspect]
     Route: 058
     Dates: start: 20130110
  9. VANCOMYCIN HYDROCHLORIDE [Suspect]
     Route: 042
     Dates: start: 20130110
  10. MIDAZOLAM [Suspect]
     Route: 065
     Dates: start: 20130114
  11. ROCURONIUM BROMIDE [Suspect]
     Route: 065
     Dates: start: 20130114
  12. BUDESONIDE [Concomitant]
     Dosage: TWO TIMES A DAY
  13. CEPHAZOLIN SODIUM [Concomitant]
  14. DEXAMETHAZONE [Concomitant]
  15. DROPERIDOL [Concomitant]
     Route: 042
  16. ESMOLOL HYDROCHLORIDE [Concomitant]
  17. GLYCOPYROLATE [Concomitant]
     Dosage: 0.4 DOSAGE UNIT N
  18. IBUPROFEN [Concomitant]
     Route: 048
  19. LINEZOLID [Concomitant]
     Route: 042
  20. METOCLOPRAMIDE HYDROCHLORIDE [Concomitant]
     Route: 042
  21. METOPROLOL [Concomitant]
  22. METRONIDAZOLE [Concomitant]
     Route: 042
  23. ONDANSETRON HYDROCHLORIDE DIHYDRATE [Concomitant]
     Route: 042
  24. OXYCODONE HYDROCHLORIDE [Concomitant]
     Route: 048
  25. PARACETAMOL [Concomitant]

REACTIONS (8)
  - Rash maculo-papular [Recovered/Resolved]
  - Anaphylactic reaction [Recovered/Resolved]
  - Erythema [Recovered/Resolved]
  - Skin lesion [Recovered/Resolved]
  - Throat tightness [Recovered/Resolved]
  - Rash [Recovered/Resolved]
  - Pruritus [Recovered/Resolved]
  - Dyspnoea [Recovered/Resolved]
